FAERS Safety Report 23470901 (Version 1)
Quarter: 2024Q1

REPORT INFORMATION
  Report Type: Spontaneous
  Country: CA (occurrence: CA)
  Receive Date: 20240202
  Receipt Date: 20240202
  Transmission Date: 20240409
  Serious: Yes (Death, Life-Threatening)
  Sender: FDA-Public Use
  Company Number: CA-FreseniusKabi-FK202401780

PATIENT
  Age: 67 Year
  Sex: Male

DRUGS (1)
  1. ETOPOSIDE [Suspect]
     Active Substance: ETOPOSIDE
     Indication: Product used for unknown indication
     Dosage: DOSAGE FORM: NOT SPECIFIED
     Route: 042

REACTIONS (5)
  - Acute kidney injury [Fatal]
  - Acute myocardial infarction [Fatal]
  - Confusional state [Fatal]
  - Fall [Fatal]
  - Product quality issue [Fatal]
